FAERS Safety Report 5983041-2 (Version None)
Quarter: 2008Q4

REPORT INFORMATION
  Report Type: 
  Country: None (occurrence: None)
  Receive Date: 20081205
  Receipt Date: 20081205
  Transmission Date: 20090506
  Serious: Yes (Other)
  Sender: FDA-Public Use
  Company Number: None

PATIENT
  Age: 69 Year
  Sex: Male
  Weight: 108.8633 kg

DRUGS (1)
  1. ISOSORBIDE MONONITRATE [Suspect]
     Indication: CARDIAC DISORDER
     Dosage: ONE TABLET ONCE A DAY
     Dates: start: 20080819, end: 20081013

REACTIONS (8)
  - ANXIETY [None]
  - CLAUSTROPHOBIA [None]
  - FEELING JITTERY [None]
  - HEADACHE [None]
  - INCORRECT DOSE ADMINISTERED [None]
  - INITIAL INSOMNIA [None]
  - MIDDLE INSOMNIA [None]
  - PRODUCT QUALITY ISSUE [None]
